FAERS Safety Report 8586024-1 (Version None)
Quarter: 2012Q3

REPORT INFORMATION
  Report Type: 
  Country: None (occurrence: None)
  Receive Date: 20120810
  Receipt Date: 20120807
  Transmission Date: 20120928
  Serious: Yes (Life-Threatening, Hospitalization)
  Sender: FDA-Public Use
  Company Number: DE-ACTELION-A-US2012-69865

PATIENT
  Age: 59 Year
  Sex: Female

DRUGS (3)
  1. VENTAVIS [Suspect]
     Indication: PULMONARY ARTERIAL HYPERTENSION
     Dosage: UNK
     Route: 055
     Dates: start: 20110701, end: 20120730
  2. VOLIBRIS [Concomitant]
  3. REVATIO [Concomitant]

REACTIONS (3)
  - FLUID RETENTION [None]
  - APALLIC SYNDROME [None]
  - CARDIAC ARREST [None]
